FAERS Safety Report 15711960 (Version 1)
Quarter: 2018Q4

REPORT INFORMATION
  Report Type: Spontaneous
  Country: AU (occurrence: AU)
  Receive Date: 20181212
  Receipt Date: 20181212
  Transmission Date: 20190205
  Serious: Yes (Other)
  Sender: FDA-Public Use
  Company Number: AU-TEVA-2018-AU-984711

PATIENT
  Age: 13 Year
  Sex: Female

DRUGS (2)
  1. CITALOPRAM [Suspect]
     Active Substance: CITALOPRAM HYDROBROMIDE
     Route: 065
  2. QUETIAPINE FUMARATE. [Suspect]
     Active Substance: QUETIAPINE FUMARATE
     Route: 065

REACTIONS (7)
  - Overdose [Unknown]
  - Coma scale abnormal [Unknown]
  - Bezoar [Unknown]
  - Heart rate increased [Unknown]
  - Blood pressure systolic decreased [Unknown]
  - Ileus [Unknown]
  - Poisoning [Unknown]
